FAERS Safety Report 8216076-X (Version None)
Quarter: 2012Q1

REPORT INFORMATION
  Report Type: 
  Country: None (occurrence: None)
  Receive Date: 20120316
  Receipt Date: 20120314
  Transmission Date: 20120608
  Serious: Yes (Death)
  Sender: FDA-Public Use
  Company Number: CA-ABBOTT-12P-028-0915839-00

PATIENT
  Age: 64 Year
  Sex: Male

DRUGS (4)
  1. DEXTROMETHORPHAN [Interacting]
     Indication: PRODUCT USED FOR UNKNOWN INDICATION
  2. MANY MEDICATIONS [Concomitant]
     Indication: BIPOLAR DISORDER
  3. PROZAC [Interacting]
     Indication: BIPOLAR DISORDER
  4. BIAXIN [Suspect]
     Indication: BRONCHITIS
     Dates: start: 20110401

REACTIONS (2)
  - ACCIDENTAL POISONING [None]
  - DRUG INTERACTION [None]
